FAERS Safety Report 23998008 (Version 1)
Quarter: 2024Q2

REPORT INFORMATION
  Report Type: Report from Study
  Country: US (occurrence: US)
  Receive Date: 20240621
  Receipt Date: 20240621
  Transmission Date: 20240715
  Serious: Yes (Hospitalization)
  Sender: FDA-Public Use
  Company Number: US-JNJFOC-20240644904

PATIENT
  Age: 29 Year
  Sex: Male

DRUGS (4)
  1. SPRAVATO [Suspect]
     Active Substance: ESKETAMINE
     Indication: Depression
     Dosage: 28 MG, TOTAL OF 2 DOSES
     Dates: start: 20240313, end: 20240316
  2. SPRAVATO [Suspect]
     Active Substance: ESKETAMINE
     Dosage: 28 MG, TOTAL OF 2 DOSES
     Dates: start: 20240322, end: 20240327
  3. SPRAVATO [Suspect]
     Active Substance: ESKETAMINE
     Dosage: 84 MG, TOTAL OF 1 DOSE
     Dates: start: 20240405, end: 20240405
  4. SPRAVATO [Suspect]
     Active Substance: ESKETAMINE
     Dosage: 56 MG, TOTAL OF 1 DOSE
     Dates: start: 20240410, end: 20240410

REACTIONS (1)
  - Hospitalisation [Unknown]

NARRATIVE: CASE EVENT DATE: 20240101
